FAERS Safety Report 18658212 (Version 4)
Quarter: 2023Q4

REPORT INFORMATION
  Report Type: Spontaneous
  Country: US (occurrence: US)
  Receive Date: 20201224
  Receipt Date: 20231004
  Transmission Date: 20240109
  Serious: Yes (Hospitalization, Other)
  Sender: FDA-Public Use
  Company Number: US-GILEAD-2020-0509274

PATIENT
  Age: 38 Year
  Sex: Female
  Weight: 90.718 kg

DRUGS (58)
  1. TRUVADA [Suspect]
     Active Substance: EMTRICITABINE\TENOFOVIR DISOPROXIL FUMARATE
     Indication: HIV infection
     Dosage: UNK
     Route: 048
     Dates: start: 2004
  2. TRUVADA [Suspect]
     Active Substance: EMTRICITABINE\TENOFOVIR DISOPROXIL FUMARATE
     Dosage: UNK
     Route: 048
     Dates: start: 20061018, end: 20110512
  3. EDURANT [Concomitant]
     Active Substance: RILPIVIRINE HYDROCHLORIDE
  4. EPIVIR [Concomitant]
     Active Substance: LAMIVUDINE
  5. EPZICOM [Concomitant]
     Active Substance: ABACAVIR SULFATE\LAMIVUDINE
  6. NORVIR [Concomitant]
     Active Substance: RITONAVIR
  7. REYATAZ [Concomitant]
     Active Substance: ATAZANAVIR SULFATE
  8. TIVICAY [Concomitant]
     Active Substance: DOLUTEGRAVIR SODIUM
  9. PREZISTA [Concomitant]
     Active Substance: DARUNAVIR ETHANOLATE
  10. ZIAGEN [Concomitant]
     Active Substance: ABACAVIR SULFATE
  11. ADALAT CC [Concomitant]
     Active Substance: NIFEDIPINE
  12. AMBIEN [Concomitant]
     Active Substance: ZOLPIDEM TARTRATE
  13. AMLODIPINE [Concomitant]
     Active Substance: AMLODIPINE BESYLATE
  14. ASPIRIN [Concomitant]
     Active Substance: ASPIRIN
  15. ATORVASTATIN [Concomitant]
     Active Substance: ATORVASTATIN
  16. BACTRIM [Concomitant]
     Active Substance: SULFAMETHOXAZOLE\TRIMETHOPRIM
  17. BACTROBAN [Concomitant]
     Active Substance: MUPIROCIN\MUPIROCIN CALCIUM
  18. CARVEDILOL [Concomitant]
     Active Substance: CARVEDILOL
  19. CIPROFLOXACIN [Concomitant]
     Active Substance: CIPROFLOXACIN
  20. CLINDAMYCIN HYDROCHLORIDE [Concomitant]
     Active Substance: CLINDAMYCIN HYDROCHLORIDE
  21. CRESTOR [Concomitant]
     Active Substance: ROSUVASTATIN CALCIUM
  22. CYCLOBENZAPRINE [Concomitant]
     Active Substance: CYCLOBENZAPRINE
  23. DILTIAZEM [Concomitant]
     Active Substance: DILTIAZEM
  24. DOCUSATE SODIUM [Concomitant]
     Active Substance: DOCUSATE SODIUM
  25. DOXYCYCLINE [Concomitant]
     Active Substance: DOXYCYCLINE
  26. ERGOCALCIFEROL [Concomitant]
     Active Substance: ERGOCALCIFEROL
  27. ETONOGESTREL [Concomitant]
     Active Substance: ETONOGESTREL
  28. FAMOTIDINE [Concomitant]
     Active Substance: FAMOTIDINE
  29. FERROUS SULFATE [Concomitant]
     Active Substance: FERROUS SULFATE
  30. FLUCONAZOLE [Concomitant]
     Active Substance: FLUCONAZOLE
  31. FUROSEMIDE [Concomitant]
     Active Substance: FUROSEMIDE
  32. GABAPENTIN [Concomitant]
     Active Substance: GABAPENTIN
  33. HYDRALAZINE [Concomitant]
     Active Substance: HYDRALAZINE HYDROCHLORIDE
  34. HYDROCHLOROTHIAZIDE [Concomitant]
     Active Substance: HYDROCHLOROTHIAZIDE
  35. IRON [Concomitant]
     Active Substance: IRON
  36. LISINOPRIL [Concomitant]
     Active Substance: LISINOPRIL
  37. LOSARTAN [Concomitant]
     Active Substance: LOSARTAN
  38. LUNESTA [Concomitant]
     Active Substance: ESZOPICLONE
  39. MEGESTROL [Concomitant]
     Active Substance: MEGESTROL
  40. METOPROLOL TARTRATE AND HYDROCHLOROTHIAZIDE [Concomitant]
     Active Substance: HYDROCHLOROTHIAZIDE\METOPROLOL TARTRATE
  41. METRONIDAZOLE [Concomitant]
     Active Substance: METRONIDAZOLE
  42. MOMETASONE [Concomitant]
     Active Substance: MOMETASONE
  43. NORETHINDRONE ACETATE AND ETHINYL ESTRADIOL [Concomitant]
     Active Substance: ETHINYL ESTRADIOL\NORETHINDRONE ACETATE
  44. ONDANSETRON [Concomitant]
     Active Substance: ONDANSETRON
  45. OMEPRAZOLE [Concomitant]
     Active Substance: OMEPRAZOLE
  46. ORTHO-NOVUM [Concomitant]
     Active Substance: ETHINYL ESTRADIOL\NORETHINDRONE
  47. OXYCODONE [Concomitant]
     Active Substance: OXYCODONE
  48. PRAVASTATIN [Concomitant]
     Active Substance: PRAVASTATIN
  49. PROMETHAZINE [Concomitant]
     Active Substance: PROMETHAZINE HYDROCHLORIDE
  50. SINGULAIR [Concomitant]
     Active Substance: MONTELUKAST SODIUM
  51. TYLENOL [Concomitant]
     Active Substance: ACETAMINOPHEN
  52. VITAMIN D3 [Concomitant]
     Active Substance: CHOLECALCIFEROL
  53. ZYVOX [Concomitant]
     Active Substance: LINEZOLID
  54. DARBEPOETIN ALFA [Concomitant]
     Active Substance: DARBEPOETIN ALFA
  55. MELOXICAM [Concomitant]
     Active Substance: MELOXICAM
  56. SEVELAMER [Concomitant]
     Active Substance: SEVELAMER
     Dosage: UNK
     Dates: start: 201808
  57. APIXABAN [Concomitant]
     Active Substance: APIXABAN
     Dosage: UNK
     Dates: start: 2018, end: 2019
  58. AMITRIPTYLINE [Concomitant]
     Active Substance: AMITRIPTYLINE
     Dosage: UNK
     Dates: start: 2008, end: 2009

REACTIONS (14)
  - Device related infection [Recovered/Resolved]
  - End stage renal disease [Not Recovered/Not Resolved]
  - Renal impairment [Not Recovered/Not Resolved]
  - Renal failure [Not Recovered/Not Resolved]
  - Thrombosis [Recovered/Resolved]
  - Chronic kidney disease [Not Recovered/Not Resolved]
  - Renal failure [Unknown]
  - Emotional distress [Unknown]
  - Anhedonia [Unknown]
  - Hyperkalaemia [Recovered/Resolved]
  - Hyperparathyroidism [Recovered/Resolved]
  - Depression [Not Recovered/Not Resolved]
  - Anxiety [Unknown]
  - Pain [Unknown]

NARRATIVE: CASE EVENT DATE: 20070501
